FAERS Safety Report 12061027 (Version 1)
Quarter: 2016Q1

REPORT INFORMATION
  Report Type: Spontaneous
  Country: JP (occurrence: JP)
  Receive Date: 20160210
  Receipt Date: 20160210
  Transmission Date: 20160526
  Serious: Yes (Hospitalization)
  Sender: FDA-Public Use
  Company Number: PHBS2000JP06207

PATIENT
  Age: 23 Year
  Sex: Female
  Weight: 48 kg

DRUGS (4)
  1. VOLTAREN [Suspect]
     Active Substance: DICLOFENAC SODIUM
     Route: 054
     Dates: start: 20000222, end: 20000224
  2. CEFCAPENE PIVOXIL [Suspect]
     Active Substance: CEFCAPENE PIVOXIL
     Route: 048
     Dates: start: 20000222, end: 20000224
  3. VOLTAREN [Suspect]
     Active Substance: DICLOFENAC SODIUM
     Dates: start: 20000222, end: 20000224
  4. PL [Suspect]
     Active Substance: ACETAMINOPHEN\CAFFEINE\PROMETHAZINE\SALICYLAMIDE
     Route: 048
     Dates: start: 20000222, end: 20000224

REACTIONS (6)
  - Cardiovascular disorder [Recovered/Resolved]
  - Rash [Unknown]
  - Peripheral swelling [Unknown]
  - Rash [Recovered/Resolved]
  - Swelling face [Unknown]
  - Cyanosis [Unknown]

NARRATIVE: CASE EVENT DATE: 20000222
